FAERS Safety Report 23128033 (Version 1)
Quarter: 2023Q4

REPORT INFORMATION
  Report Type: Spontaneous
  Country: US (occurrence: US)
  Receive Date: 20231031
  Receipt Date: 20231031
  Transmission Date: 20240109
  Serious: No
  Sender: FDA-Public Use
  Company Number: US-GLENMARK PHARMACEUTICALS-2023GMK077552

PATIENT

DRUGS (1)
  1. NYSTATIN\TRIAMCINOLONE ACETONIDE [Suspect]
     Active Substance: NYSTATIN\TRIAMCINOLONE ACETONIDE
     Indication: Vulvovaginal mycotic infection
     Dosage: UNK, BID
     Route: 061

REACTIONS (2)
  - Expired product administered [Unknown]
  - Product use in unapproved indication [Unknown]
